FAERS Safety Report 15508344 (Version 1)
Quarter: 2018Q4

REPORT INFORMATION
  Report Type: Spontaneous
  Country: US (occurrence: US)
  Receive Date: 20181016
  Receipt Date: 20181016
  Transmission Date: 20190205
  Serious: Yes (Other)
  Sender: FDA-Public Use
  Company Number: US-009507513-1810JPN005618

PATIENT
  Age: 25 Year
  Sex: Female
  Weight: 35.01 kg

DRUGS (17)
  1. AMOXICILLIN (+) CLAVULANATE POTASSIUM [Suspect]
     Active Substance: AMOXICILLIN\CLAVULANATE POTASSIUM
     Indication: TUBERCULOSIS
     Dosage: 1250 MG QD
     Route: 048
     Dates: start: 20180322
  2. IMIPENEM AND CILASTATIN [Suspect]
     Active Substance: CILASTATIN SODIUM\IMIPENEM
     Indication: TUBERCULOSIS
     Dosage: 2 GRAMS, UNK
     Route: 042
     Dates: start: 20180322
  3. ASCORBIC ACID. [Concomitant]
     Active Substance: ASCORBIC ACID
     Indication: MALNUTRITION
  4. HYDROXYUREA. [Concomitant]
     Active Substance: HYDROXYUREA
     Indication: THROMBOCYTOSIS
     Dosage: UNK
     Dates: start: 20180516
  5. IRON (UNSPECIFIED) [Concomitant]
     Active Substance: IRON
     Indication: ANAEMIA
     Dosage: UNK
     Dates: start: 20180131
  6. VITAMIN B (UNSPECIFIED) [Concomitant]
     Active Substance: VITAMIN B
     Indication: MALNUTRITION
     Dosage: UNK
     Dates: start: 20180228
  7. BEDAQUILINE [Suspect]
     Active Substance: BEDAQUILINE
     Indication: TUBERCULOSIS
     Dosage: 200 MG, TIW
     Route: 048
     Dates: start: 20180322
  8. VITAMIN E [Concomitant]
     Active Substance: .ALPHA.-TOCOPHEROL
     Indication: MALNUTRITION
     Dosage: UNK
     Dates: start: 20180130
  9. ERGOCALCIFEROL. [Concomitant]
     Active Substance: ERGOCALCIFEROL
     Indication: MALNUTRITION
  10. PAS [Suspect]
     Active Substance: AMINOSALICYLIC ACID
     Indication: TUBERCULOSIS
     Dosage: 8 MG, QD
     Route: 048
     Dates: start: 20180322
  11. DELAMANID [Suspect]
     Active Substance: DELAMANID
     Indication: TUBERCULOSIS
     Dosage: 200 MG, QD
     Route: 048
     Dates: start: 20180322
  12. VITAMIN A [Concomitant]
     Active Substance: VITAMIN A
     Indication: MALNUTRITION
  13. LEVOTHYROXINE SODIUM. [Concomitant]
     Active Substance: LEVOTHYROXINE SODIUM
     Indication: HYPOTHYROIDISM
     Dosage: UNK
     Dates: start: 20180626
  14. CHOLECALCIFEROL [Concomitant]
     Active Substance: CHOLECALCIFEROL
     Indication: MALNUTRITION
     Dosage: UNK
     Dates: start: 20180131
  15. CLOFAZIMINE [Suspect]
     Active Substance: CLOFAZIMINE
     Indication: TUBERCULOSIS
     Dosage: 100 MG, DAILY
     Route: 048
     Dates: start: 20180322
  16. FOLIC ACID. [Concomitant]
     Active Substance: FOLIC ACID
     Indication: MALNUTRITION
     Dosage: UNK
     Dates: start: 20180131
  17. NEOGADINE DROPS [Concomitant]
     Indication: DECREASED APPETITE

REACTIONS (2)
  - Tinnitus [Unknown]
  - Hypoacusis [Unknown]

NARRATIVE: CASE EVENT DATE: 20180907
